FAERS Safety Report 24760276 (Version 2)
Quarter: 2024Q4

REPORT INFORMATION
  Report Type: Spontaneous
  Country: CN (occurrence: CN)
  Receive Date: 20241220
  Receipt Date: 20241227
  Transmission Date: 20250115
  Serious: No
  Sender: BAYER HEALTHCARE PHARMACEUTICALS INC.
  Company Number: CN-BAYER-2024A179753

PATIENT
  Age: 57 Year
  Sex: Female

DRUGS (3)
  1. ULTRAVIST [Suspect]
     Active Substance: IOPROMIDE
     Indication: Arteriogram carotid
     Dosage: 100 ML, ONCE, HIGH PRESSURE INTRAVENOUS MASS INJECTION
     Dates: start: 20241128, end: 20241128
  2. ULTRAVIST [Suspect]
     Active Substance: IOPROMIDE
     Indication: Angiogram
  3. ULTRAVIST [Suspect]
     Active Substance: IOPROMIDE
     Indication: Lacunar infarction

REACTIONS (2)
  - Hypoaesthesia [Recovering/Resolving]
  - Headache [Recovering/Resolving]

NARRATIVE: CASE EVENT DATE: 20241128
